FAERS Safety Report 20665034 (Version 2)
Quarter: 2022Q2

REPORT INFORMATION
  Report Type: Report from Study
  Country: US (occurrence: US)
  Receive Date: 20220401
  Receipt Date: 20220411
  Transmission Date: 20220721
  Serious: Yes (Other)
  Sender: FDA-Public Use
  Company Number: US-ALLERGAN-2210661US

PATIENT
  Sex: Female

DRUGS (4)
  1. ATOGEPANT [Suspect]
     Active Substance: ATOGEPANT
     Indication: Migraine
     Dosage: 60 MG, QD
     Dates: start: 202112, end: 202112
  2. UBRELVY [Concomitant]
     Active Substance: UBROGEPANT
  3. TOPAMAX [Concomitant]
     Active Substance: TOPIRAMATE
  4. ADDERALL [Concomitant]
     Active Substance: AMPHETAMINE ASPARTATE\AMPHETAMINE SULFATE\DEXTROAMPHETAMINE SACCHARATE\DEXTROAMPHETAMINE SULFATE
     Indication: Attention deficit hyperactivity disorder
     Dosage: 60 MG

REACTIONS (5)
  - Loss of consciousness [Recovered/Resolved]
  - COVID-19 [Unknown]
  - Heart rate abnormal [Recovered/Resolved]
  - Blood pressure abnormal [Recovered/Resolved]
  - Migraine [Unknown]

NARRATIVE: CASE EVENT DATE: 20211201
